FAERS Safety Report 6232948-X (Version None)
Quarter: 2009Q2

REPORT INFORMATION
  Report Type: 
  Country: None (occurrence: None)
  Receive Date: 20090617
  Receipt Date: 20090611
  Transmission Date: 20091009
  Serious: Yes (Death, Hospitalization)
  Sender: FDA-Public Use
  Company Number: GB-PFIZER INC-2006047434

PATIENT
  Age: 57 Year

DRUGS (7)
  1. SUNITINIB MALATE [Suspect]
     Indication: RENAL CELL CARCINOMA
     Dosage: 50 MG, 1X/DAY
     Route: 048
     Dates: start: 20060123, end: 20060219
  2. SUNITINIB MALATE [Suspect]
     Dosage: 50 MG, 1X/DAY
     Route: 048
     Dates: start: 20060306, end: 20060403
  3. MORPHINE SULFATE [Concomitant]
     Dosage: UNK
     Route: 048
  4. ORAMORPH SR [Concomitant]
     Route: 048
  5. LACTULOSE [Concomitant]
     Route: 048
  6. OMEPRAZOLE [Concomitant]
     Route: 048
  7. CO-FLUAMPICIL [Concomitant]
     Route: 048
     Dates: start: 20060328

REACTIONS (3)
  - DISEASE PROGRESSION [None]
  - RENAL CELL CARCINOMA [None]
  - RENAL IMPAIRMENT [None]
